FAERS Safety Report 4618236-3 (Version None)
Quarter: 2005Q1

REPORT INFORMATION
  Report Type: 
  Country: None (occurrence: None)
  Receive Date: 20050324
  Receipt Date: 20050314
  Transmission Date: 20050727
  Serious: Yes (Other)
  Sender: FDA-Public Use
  Company Number: GB-ABBOTT-05P-167-0294060-00

PATIENT
  Age: 38 Year
  Sex: Female

DRUGS (5)
  1. CLARITHROMYCIN [Suspect]
     Indication: ABSCESS
     Route: 048
     Dates: start: 20050212, end: 20050212
  2. CEFUROXIME [Concomitant]
     Indication: ABSCESS
     Route: 042
     Dates: start: 20050211, end: 20050212
  3. ACETAMINOPHEN W/ CODEINE [Concomitant]
     Indication: POSTOPERATIVE ANALGESIA
     Dosage: 30/500
     Route: 048
     Dates: start: 20050212, end: 20050215
  4. CLINDAMYCIN [Concomitant]
     Indication: ABSCESS
     Route: 048
     Dates: start: 20050212, end: 20050215
  5. TRAMADOL HCL [Concomitant]
     Indication: POSTOPERATIVE ANALGESIA
     Route: 048
     Dates: start: 20050211, end: 20050215

REACTIONS (2)
  - ERYTHEMA [None]
  - SWELLING FACE [None]
